FAERS Safety Report 11793813 (Version 3)
Quarter: 2015Q4

REPORT INFORMATION
  Report Type: Report from Study
  Country: US (occurrence: US)
  Receive Date: 20151202
  Receipt Date: 20151223
  Transmission Date: 20160305
  Serious: Yes (Hospitalization)
  Sender: FDA-Public Use
  Company Number: US-BAYER-2015-439719

PATIENT
  Age: 56 Year
  Sex: Female

DRUGS (1)
  1. NEXAVAR [Suspect]
     Active Substance: SORAFENIB
     Indication: HEPATOCELLULAR CARCINOMA
     Dosage: 400 MG, BID
     Route: 048
     Dates: start: 20151003, end: 201511

REACTIONS (9)
  - Dry skin [Recovering/Resolving]
  - Pain of skin [None]
  - Laboratory test abnormal [Recovering/Resolving]
  - Rash [None]
  - Decreased appetite [Not Recovered/Not Resolved]
  - Skin exfoliation [Recovering/Resolving]
  - Blood pressure increased [Recovering/Resolving]
  - Blood pressure fluctuation [Not Recovered/Not Resolved]
  - Fatigue [Recovering/Resolving]

NARRATIVE: CASE EVENT DATE: 20151003
